FAERS Safety Report 4771746-0 (Version None)
Quarter: 2005Q3

REPORT INFORMATION
  Report Type: 
  Country: None (occurrence: None)
  Receive Date: 20050916
  Receipt Date: 20050913
  Transmission Date: 20060218
  Serious: Yes (Life-Threatening)
  Sender: FDA-Public Use
  Company Number: NL-MERCK-0509NLD00012

PATIENT
  Age: 46 Year
  Sex: Female

DRUGS (2)
  1. ZOCOR [Suspect]
     Indication: HYPERCHOLESTEROLAEMIA
     Route: 048
     Dates: start: 20050201, end: 20050401
  2. ATORVASTATIN CALCIUM [Suspect]
     Indication: HYPERCHOLESTEROLAEMIA
     Route: 048
     Dates: start: 20041201, end: 20050201

REACTIONS (5)
  - ARTHRALGIA [None]
  - CONSTIPATION [None]
  - DEPRESSION [None]
  - MUSCLE SPASMS [None]
  - SUICIDAL IDEATION [None]
